FAERS Safety Report 8108411-8 (Version None)
Quarter: 2012Q1

REPORT INFORMATION
  Report Type: 
  Country: None (occurrence: None)
  Receive Date: 20120202
  Receipt Date: 20120130
  Transmission Date: 20120608
  Serious: Yes (Other)
  Sender: FDA-Public Use
  Company Number: US-BAYER-2012-009575

PATIENT
  Age: 29 Year
  Sex: Female

DRUGS (3)
  1. INTERFERON BETA-1B [Suspect]
     Indication: MULTIPLE SCLEROSIS
     Dosage: UNK
     Route: 058
     Dates: start: 20110401, end: 20110903
  2. INTERFERON BETA-1B [Suspect]
     Dosage: 6 MIU, QOD
     Route: 058
     Dates: start: 20120129
  3. INTERFERON BETA-1B [Suspect]
     Dosage: UNK
     Route: 058
     Dates: start: 20110922, end: 20111223

REACTIONS (2)
  - ANXIETY [None]
  - PANIC ATTACK [None]
